FAERS Safety Report 6689202-1 (Version None)
Quarter: 2010Q2

REPORT INFORMATION
  Report Type: 
  Country: None (occurrence: None)
  Receive Date: 20100414
  Receipt Date: 20100331
  Transmission Date: 20101027
  Serious: Yes (Hospitalization)
  Sender: FDA-Public Use
  Company Number: US-JNJFOC-20091203058

PATIENT
  Age: 79 Year
  Sex: Male
  Weight: 85.7298 kg

DRUGS (16)
  1. DECITABINE (DECITABINE) LYOPHILIZED POWDER [Suspect]
     Indication: MYELODYSPLASTIC SYNDROME
     Dosage: 39 MG, SUBCUTANEOUS
     Route: 058
     Dates: start: 20091116
  2. FOLIC ACID UNSPECIFIED [Concomitant]
  3. METOPROLOL [Concomitant]
  4. PLAVIX [Concomitant]
  5. . [Concomitant]
  6. ASPRIN (ACETYSALICYLIC ACID) [Concomitant]
  7. RAMIPRIL [Concomitant]
  8. FUROSEMIDE [Concomitant]
  9. TRAMADOL HCL [Concomitant]
  10. ABIEN (ZOLPIDEM TARTRATE) [Concomitant]
  11. CARAFATE [Concomitant]
  12. SPIRIVA [Concomitant]
  13. ADVAIR HFA [Concomitant]
  14. ASCORBIC ACID [Concomitant]
  15. MULTIVITAMIN [Concomitant]
  16. . [Concomitant]

REACTIONS (10)
  - ANAEMIA [None]
  - ANGINA PECTORIS [None]
  - CHRONIC OBSTRUCTIVE PULMONARY DISEASE [None]
  - CONDITION AGGRAVATED [None]
  - GASTROINTESTINAL HAEMORRHAGE [None]
  - HYPOAESTHESIA [None]
  - LEFT VENTRICULAR DYSFUNCTION [None]
  - MITRAL VALVE INCOMPETENCE [None]
  - PNEUMONIA [None]
  - RIGHT VENTRICULAR SYSTOLIC PRESSURE INCREASED [None]
